FAERS Safety Report 10381423 (Version 1)
Quarter: 2014Q1

REPORT INFORMATION
  Report Type: Spontaneous
  Country: US (occurrence: None)
  Receive Date: 20140306
  Receipt Date: 20140306
  Transmission Date: 20141002
  Serious: Yes (Other)
  Sender: FDA-Public Use
  Company Number: 163-21880-13013904

PATIENT
  Age: 90 Year
  Sex: Female

DRUGS (9)
  1. REVLIMID (LENALIDOMIDE) (CAPSULES) [Suspect]
     Indication: MYELODYSPLASTIC SYNDROME
     Dosage: 10 MG, 28 IN 28 D, PO  ,TEMP. INTERRUPTED
     Route: 048
     Dates: start: 20121226
  2. ALLOPURINOL [Concomitant]
  3. ASPIRIN (ACETYLSALICYLIC ACID) [Concomitant]
  4. FOLIC ACID [Concomitant]
  5. MAGNESIUM OXIDE [Concomitant]
  6. MOBIC (MELOXICAM) [Concomitant]
  7. OMEPRAZOLE [Concomitant]
  8. TRAMADOL HCL [Concomitant]
  9. VITAMIN B12 (CYANOCOBALAMIN) [Concomitant]

REACTIONS (2)
  - Renal failure [None]
  - Anaemia [None]
